FAERS Safety Report 4355232-8 (Version None)
Quarter: 2004Q2

REPORT INFORMATION
  Report Type: 
  Country: None (occurrence: None)
  Receive Date: 20040504
  Receipt Date: 20040422
  Transmission Date: 20050107
  Serious: Yes (Hospitalization)
  Sender: FDA-Public Use
  Company Number: 2004CG00785

PATIENT
  Age: 20 Year
  Sex: Female

DRUGS (1)
  1. ZOMIG [Suspect]
     Indication: MIGRAINE
     Dosage: 2.5 MG DAILY PO
     Route: 048

REACTIONS (8)
  - ASTHENIA [None]
  - HEADACHE [None]
  - NAUSEA [None]
  - OVERDOSE [None]
  - PHONOPHOBIA [None]
  - PHOTOPHOBIA [None]
  - SOMNOLENCE [None]
  - VOMITING [None]
